FAERS Safety Report 7825685-9 (Version None)
Quarter: 2011Q4

REPORT INFORMATION
  Report Type: 
  Country: None (occurrence: None)
  Receive Date: 20111017
  Receipt Date: 20110927
  Transmission Date: 20120403
  Serious: Yes (Hospitalization)
  Sender: FDA-Public Use
  Company Number: 2011PROUSA00584

PATIENT
  Age: 77 Year
  Sex: Male
  Weight: 80.7 kg

DRUGS (11)
  1. MULTIVITAMIN /00097801/ (ASCORBIC ACID, CALCIUM PANTOTHENATE, ERGOCALC [Concomitant]
  2. COTINAMIDE, PYRIDOXINE HYDROCHLORIDE, RETINOL, RIBOFLAVIN, THIAMINE HY [Concomitant]
  3. HYDROCORTISON	/00028601/ (HYDROCORTISONE) [Concomitant]
  4. ASPIRIN [Concomitant]
  5. VIT D (ERGOCALCIFEROL) [Concomitant]
  6. PROVENGE [Suspect]
     Indication: PROSTATE CANCER METASTATIC
     Dosage: 250 ML, SINGLE, INTRAVENOUS
     Route: 042
     Dates: start: 20110718, end: 20110718
  7. COMPAZINE	/00013302/ (PROCHLORPERAZINE EDISYLATE) [Concomitant]
  8. SYNTHROID [Concomitant]
  9. CALCIUM CARBONATE [Concomitant]
  10. ZOFRAN	/00955301/ (ONDANSETRON) [Concomitant]
  11. LASIX	/00032601/ (FUROSEMIDE) [Concomitant]

REACTIONS (6)
  - HAEMATURIA [None]
  - STAPHYLOCOCCUS TEST POSITIVE [None]
  - LABORATORY TEST INTERFERENCE [None]
  - URINARY TRACT INFECTION PSEUDOMONAL [None]
  - SEPSIS [None]
  - ANAEMIA [None]
